FAERS Safety Report 4319100-X (Version None)
Quarter: 2004Q1

REPORT INFORMATION
  Report Type: 
  Country: None (occurrence: None)
  Receive Date: 20040316
  Receipt Date: 20040203
  Transmission Date: 20041129
  Serious: Yes (Death)
  Sender: FDA-Public Use
  Company Number: YITDZ0040009

PATIENT
  Age: 77 Year
  Sex: Male

DRUGS (8)
  1. MILRILA (MILRINONE) [Suspect]
     Indication: CARDIAC FAILURE
     Dosage: 40 MG CONTINUOUS DR
     Dates: start: 20040115, end: 20040120
  2. MILRILA (MILRINONE) [Suspect]
     Indication: HYPERTENSION
     Dosage: 40 MG CONTINUOUS DR
     Dates: start: 20040115, end: 20040120
  3. CARPERITIDE [Concomitant]
  4. DIGOXIN [Concomitant]
  5. FUROSDEMIDE [Concomitant]
  6. POTASSIUM CANRENOATE [Concomitant]
  7. TIENAM (IMIPENEM/CILASTATIN) [Concomitant]
  8. MEROPENEM [Concomitant]

REACTIONS (7)
  - CARDIAC ARREST [None]
  - OXYGEN SATURATION DECREASED [None]
  - PLATELET COUNT DECREASED [None]
  - PULMONARY ALVEOLAR HAEMORRHAGE [None]
  - PULMONARY CONGESTION [None]
  - PULMONARY HAEMORRHAGE [None]
  - RESPIRATORY ARREST [None]
